FAERS Safety Report 9170877 (Version 2)
Quarter: 2013Q2

REPORT INFORMATION
  Report Type: Spontaneous
  Country: US (occurrence: US)
  Receive Date: 20130319
  Receipt Date: 20130426
  Transmission Date: 20140414
  Serious: Yes (Disabling)
  Sender: FDA-Public Use
  Company Number: US-PFIZER INC-2013089135

PATIENT
  Sex: Male

DRUGS (3)
  1. CELEBREX [Suspect]
     Indication: ARTHRITIS
     Dosage: 200 MG, AS NEEDED
     Route: 048
     Dates: start: 2002
  2. SYMBICORT [Concomitant]
     Indication: DYSPNOEA
     Dosage: UNK
  3. PREDNISONE [Concomitant]
     Indication: DYSPNOEA
     Dosage: UNK, AS NEEDED

REACTIONS (1)
  - Tendon rupture [Unknown]
